FAERS Safety Report 10256643 (Version 1)
Quarter: 2014Q2

REPORT INFORMATION
  Report Type: Report from Study
  Country: US (occurrence: US)
  Receive Date: 20140624
  Receipt Date: 20140624
  Transmission Date: 20141212
  Serious: Yes (Death, Other)
  Sender: FDA-Public Use
  Company Number: US-BAXTER-2014BAX033930

PATIENT
  Sex: 0

DRUGS (4)
  1. GAMMAGARD LIQUID [Suspect]
     Indication: IMMUNOGLOBULIN THERAPY
     Dosage: 2 G/KG 6-10 DAYS POST TRANSPLANT
     Route: 042
  2. GAMMAGARD LIQUID [Suspect]
     Indication: OFF LABEL USE
     Dosage: 2 G/KG EVERY 3-4 WEEKS, 6-12 MONTHS POST TRANSPLANT
     Route: 042
  3. GAMMAGARD LIQUID [Suspect]
     Indication: TRANSPLANT REJECTION
  4. RITUXIMAB [Suspect]
     Indication: IMMUNOGLOBULIN THERAPY
     Route: 065

REACTIONS (2)
  - Transplant rejection [Not Recovered/Not Resolved]
  - Death [Fatal]
